FAERS Safety Report 8707972 (Version 2)
Quarter: 2013Q1

REPORT INFORMATION
  Report Type: Spontaneous
  Country: IE (occurrence: None)
  Receive Date: 20120719
  Receipt Date: 20120904
  Transmission Date: 20140127
  Serious: Yes (Other)
  Sender: FDA-Public Use
  Company Number: 2010025601

PATIENT
  Age: 44 Year
  Sex: Male

DRUGS (5)
  1. ZEMAIRA [Suspect]
     Indication: ALPHA-1 ANTI-TRYPSIN DEFICIENCY
     Dosage: 4980 MG  1X/WEEK, 4920 MG 1X/WEEK, INTRAVENOUS
     Route: 042
     Dates: start: 20090420
  2. KLARICID (CLARITHYROMYCIN) [Concomitant]
  3. KLACID LA [Concomitant]
  4. AUGMENTIN [Concomitant]
  5. NEUROFEN PLUS [Concomitant]

REACTIONS (2)
  - Back pain [None]
  - Intervertebral disc protrusion [None]
